FAERS Safety Report 6473375-X (Version None)
Quarter: 2009Q4

REPORT INFORMATION
  Report Type: 
  Country: None (occurrence: None)
  Receive Date: 20091204
  Receipt Date: 20090506
  Transmission Date: 20100525
  Serious: Yes (Hospitalization, Other)
  Sender: FDA-Public Use
  Company Number: FR-ELI_LILLY_AND_COMPANY-FR200901000149

PATIENT
  Age: 71 Year
  Sex: Female
  Weight: 68 kg

DRUGS (5)
  1. FORTEO [Suspect]
     Indication: OSTEOPOROSIS
     Dosage: 20 UG, DAILY (1/D)
     Route: 058
     Dates: start: 20080703, end: 20081216
  2. UN-ALFA [Concomitant]
     Indication: HYPOCALCAEMIA
     Dosage: 3 D/F, DAILY (1/D)
     Route: 048
  3. LEVOTHYROXINE SODIUM [Concomitant]
     Indication: THYROID DISORDER
     Dosage: 125 UG, DAILY (1/D)
     Route: 048
  4. PROPOFAN [Concomitant]
     Dosage: 3 D/F, DAILY (1/D)
     Route: 048
  5. CACIT [Concomitant]
     Dosage: 500 MG, UNKNOWN
     Route: 048

REACTIONS (2)
  - HYPERCALCAEMIA [None]
  - RENAL FAILURE [None]
